FAERS Safety Report 22345972 (Version 1)
Quarter: 2023Q2

REPORT INFORMATION
  Report Type: Report from Study
  Country: US (occurrence: US)
  Receive Date: 20230519
  Receipt Date: 20230519
  Transmission Date: 20230721
  Serious: Yes (Death, Other)
  Sender: FDA-Public Use
  Company Number: US-SA-SAC20230309001414

PATIENT
  Age: 56 Year
  Sex: Female

DRUGS (5)
  1. BELUMOSUDIL MESYLATE [Suspect]
     Active Substance: BELUMOSUDIL MESYLATE
     Indication: Chronic myeloid leukaemia
     Dosage: 200 MG, QD
     Route: 048
     Dates: start: 20230203, end: 20230510
  2. AMOXICILLIN [Concomitant]
     Active Substance: AMOXICILLIN
     Indication: Pneumonia
     Dosage: UNK
     Route: 065
  3. LEVAQUIN [Concomitant]
     Active Substance: LEVOFLOXACIN
     Indication: Pneumonia
     Dosage: UNK
  4. ACTIGALL [Concomitant]
     Active Substance: URSODIOL
     Dosage: UNK
  5. VTAMA [Concomitant]
     Active Substance: TAPINAROF
     Dosage: UNK

REACTIONS (11)
  - Death [Fatal]
  - Pneumonia [Unknown]
  - Weight decreased [Unknown]
  - Muscle atrophy [Unknown]
  - Tendonitis [Unknown]
  - Hypotonia [Unknown]
  - Rash [Unknown]
  - Rash pruritic [Unknown]
  - Hepatic enzyme increased [Unknown]
  - Asthenia [Unknown]
  - Product use in unapproved indication [Unknown]

NARRATIVE: CASE EVENT DATE: 20230203
